FAERS Safety Report 16940001 (Version 1)
Quarter: 2019Q4

REPORT INFORMATION
  Report Type: Report from Study
  Country: BR (occurrence: BR)
  Receive Date: 20191021
  Receipt Date: 20191021
  Transmission Date: 20200122
  Serious: Yes (Hospitalization, Other)
  Sender: FDA-Public Use
  Company Number: NVSC2019BR004477

PATIENT
  Age: 59 Year
  Sex: Female

DRUGS (2)
  1. ANCORON [Concomitant]
     Active Substance: AMIODARONE HYDROCHLORIDE
     Indication: PRODUCT USED FOR UNKNOWN INDICATION
     Dosage: UNK
     Route: 065
  2. ENTRESTO [Suspect]
     Active Substance: SACUBITRIL\VALSARTAN
     Indication: PRODUCT USED FOR UNKNOWN INDICATION
     Dosage: 100 MG (49 MG SACUBITRIL/51 MG VALSARTAN)
     Route: 065
     Dates: start: 201801

REACTIONS (16)
  - Weight increased [Recovering/Resolving]
  - Weight decreased [Recovering/Resolving]
  - Anxiety [Recovering/Resolving]
  - Burning sensation [Not Recovered/Not Resolved]
  - Feeling abnormal [Recovering/Resolving]
  - Cardiac arrest [Recovering/Resolving]
  - Ejection fraction decreased [Recovering/Resolving]
  - Insomnia [Recovering/Resolving]
  - Malaise [Recovering/Resolving]
  - Dry skin [Not Recovered/Not Resolved]
  - Inflammation [Recovering/Resolving]
  - Dyspnoea [Recovering/Resolving]
  - Blindness [Recovering/Resolving]
  - Complication associated with device [Unknown]
  - Fluid retention [Recovering/Resolving]
  - Hypersensitivity [Not Recovered/Not Resolved]

NARRATIVE: CASE EVENT DATE: 201801
